FAERS Safety Report 9678823 (Version 1)
Quarter: 2013Q4

REPORT INFORMATION
  Report Type: Spontaneous
  Country: US (occurrence: None)
  Receive Date: 20131107
  Receipt Date: 20131107
  Transmission Date: 20140711
  Serious: Yes (Hospitalization, Other)
  Sender: FDA-Public Use
  Company Number: US-ZYDUS-002356

PATIENT
  Age: 67 Year
  Sex: Male

DRUGS (3)
  1. WARFARIN [Suspect]
  2. ASPIRIN [Suspect]
  3. DABIGATRAN ETEXILATE [Suspect]

REACTIONS (4)
  - Renal failure acute [None]
  - Haematuria [None]
  - Blood creatine increased [None]
  - IgA nephropathy [None]
